FAERS Safety Report 4527919-5 (Version None)
Quarter: 2004Q4

REPORT INFORMATION
  Report Type: 
  Country: None (occurrence: None)
  Receive Date: 20041123
  Receipt Date: 20040628
  Transmission Date: 20050328
  Serious: Yes (Hospitalization)
  Sender: FDA-Public Use
  Company Number: 20040600334

PATIENT
  Age: 48 Year
  Sex: Female

DRUGS (2)
  1. INFUMORPH [Suspect]
     Indication: PAIN
  2. ZICONOTIDE [Concomitant]

REACTIONS (2)
  - ABDOMINAL PAIN [None]
  - CONSTIPATION [None]
